FAERS Safety Report 4618851-7 (Version None)
Quarter: 2005Q1

REPORT INFORMATION
  Report Type: 
  Country: None (occurrence: None)
  Receive Date: 20050323
  Receipt Date: 20050314
  Transmission Date: 20050727
  Serious: Yes (Other)
  Sender: FDA-Public Use
  Company Number: 2004059024

PATIENT
  Sex: Female

DRUGS (7)
  1. NEURONTIN [Suspect]
     Indication: ARTHRITIS
     Dosage: 1800 MG (600 MG, 3 IN 1 D)
  2. NEURONTIN [Suspect]
     Indication: PAIN
     Dosage: 1800 MG (600 MG, 3 IN 1 D)
  3. FENTANYL [Concomitant]
  4. IBUPROFEN [Concomitant]
  5. ROFECOXIB [Concomitant]
  6. HELIANTUS TUBEROSUS (HELIANTUS TUBEROSUS) [Concomitant]
  7. ALL OTHER THERAPEUTIC PRODUCTS [Concomitant]

REACTIONS (4)
  - ARTHRALGIA [None]
  - ARTHRITIS [None]
  - KNEE ARTHROPLASTY [None]
  - OSTEOPOROSIS [None]
